FAERS Safety Report 18319614 (Version 1)
Quarter: 2020Q3

REPORT INFORMATION
  Report Type: Spontaneous
  Country: JP (occurrence: JP)
  Receive Date: 20200928
  Receipt Date: 20200928
  Transmission Date: 20201103
  Serious: Yes (Other)
  Sender: FDA-Public Use
  Company Number: JP-STRIDES ARCOLAB LIMITED-2020SP011434

PATIENT
  Age: 74 Year
  Sex: Male

DRUGS (2)
  1. AMLODIPINE [Suspect]
     Active Substance: AMLODIPINE BESYLATE
     Indication: HYPERTENSION
     Dosage: 5 MILLIGRAM DAILY
     Route: 065
  2. NAFTOPIDIL [Concomitant]
     Active Substance: NAFTOPIDIL
     Indication: HYPERTENSION
     Dosage: 50 MILLIGRAM DAILY
     Route: 065

REACTIONS (7)
  - Erythema [Recovered/Resolved]
  - Pseudolymphoma [Unknown]
  - Drug eruption [Recovered/Resolved]
  - Skin plaque [Recovered/Resolved]
  - Lymphocytic infiltration [Unknown]
  - Papule [Recovered/Resolved]
  - Pruritus [Recovered/Resolved]
